FAERS Safety Report 9140117 (Version 5)
Quarter: 2016Q1

REPORT INFORMATION
  Report Type: Report from Study
  Country: JP (occurrence: JP)
  Receive Date: 20130305
  Receipt Date: 20160303
  Transmission Date: 20160526
  Serious: Yes (Death, Life-Threatening, Hospitalization)
  Sender: FDA-Public Use
  Company Number: JP-PFIZER INC-2012082426

PATIENT
  Age: 59 Year
  Sex: Female
  Weight: 46 kg

DRUGS (12)
  1. BLOPRESS [Concomitant]
     Active Substance: CANDESARTAN CILEXETIL
     Indication: HYPERTENSION
     Dosage: 4 MG, 2X/DAY
     Route: 048
     Dates: start: 20061004
  2. ISODINE [Concomitant]
     Active Substance: POVIDONE-IODINE
     Indication: INFECTION PROPHYLAXIS
     Dosage: OPTIMAL DOSE, AS NEEDED
     Route: 049
     Dates: start: 20090903
  3. TOFACITINIB CITRATE [Suspect]
     Active Substance: TOFACITINIB CITRATE
     Indication: RHEUMATOID ARTHRITIS
     Dosage: 10 MG, 2X/DAY
     Route: 048
     Dates: start: 20111213, end: 20120329
  4. MUCODYNE [Concomitant]
     Active Substance: CARBOCYSTEINE
     Indication: SINUSITIS
     Dosage: 500 MG, 3X/DAY
     Route: 048
     Dates: start: 20110730
  5. ACTONEL [Concomitant]
     Active Substance: RISEDRONATE SODIUM
     Indication: OSTEOPOROSIS
     Dosage: 17.5 MG, WEEKLY
     Route: 048
     Dates: start: 20091118
  6. METOLATE [Suspect]
     Active Substance: METHOTREXATE
     Indication: RHEUMATOID ARTHRITIS
     Dosage: 14 MG, WEEKLY
     Route: 048
     Dates: start: 20081222
  7. PARIET [Concomitant]
     Active Substance: RABEPRAZOLE SODIUM
     Indication: GASTROOESOPHAGEAL REFLUX DISEASE
     Dosage: 10 MG, 1X/DAY
     Route: 048
     Dates: start: 20081219
  8. PREDNISOLONE. [Concomitant]
     Active Substance: PREDNISOLONE
     Indication: RHEUMATOID ARTHRITIS
     Dosage: 2.5 MG, 2X/DAY
     Route: 048
     Dates: start: 2004
  9. NEUZYM [Concomitant]
     Active Substance: LYSOZYME HYDROCHLORIDE
     Indication: SINUSITIS
     Dosage: 90 MG, 3X/DAY
     Route: 048
     Dates: start: 20110730
  10. FOLIAMIN [Concomitant]
     Active Substance: FOLIC ACID
     Indication: RHEUMATOID ARTHRITIS
     Dosage: 5 MG, WEEKLY
     Route: 048
     Dates: start: 20070111
  11. MOBIC [Concomitant]
     Active Substance: MELOXICAM
     Indication: RHEUMATOID ARTHRITIS
     Dosage: 10 MG, 1X/DAY
     Route: 048
     Dates: start: 20070306, end: 20120331
  12. RULID [Concomitant]
     Active Substance: ROXITHROMYCIN
     Indication: SINUSITIS
     Dosage: 150 MG, 1X/DAY
     Route: 048
     Dates: start: 20111216

REACTIONS (1)
  - Liposarcoma [Fatal]

NARRATIVE: CASE EVENT DATE: 20120308
